FAERS Safety Report 9528061 (Version 1)
Quarter: 2013Q3

REPORT INFORMATION
  Report Type: Spontaneous
  Country: GB (occurrence: None)
  Receive Date: 20130913
  Receipt Date: 20130913
  Transmission Date: 20140515
  Serious: Yes (Other)
  Sender: FDA-Public Use
  Company Number: KAD201309-001155

PATIENT
  Age: 38 Year
  Sex: Male

DRUGS (3)
  1. RIBAVIRIN [Suspect]
     Indication: HEPATITIS C
     Route: 048
     Dates: start: 20121024
  2. INCIVO [Suspect]
     Indication: HEPATITIS C
     Route: 048
     Dates: start: 20121024
  3. INTERFERON ALFA-2B [Suspect]
     Indication: HEPATITIS C
     Route: 042
     Dates: start: 20121024

REACTIONS (8)
  - Depression [None]
  - Haemorrhoids [None]
  - Insomnia [None]
  - Mood swings [None]
  - Haemorrhoidal haemorrhage [None]
  - Intestinal mass [None]
  - Proctalgia [None]
  - Rectal haemorrhage [None]
